FAERS Safety Report 10400322 (Version 1)
Quarter: 2014Q1

REPORT INFORMATION
  Report Type: Spontaneous
  Country: US (occurrence: None)
  Receive Date: 20130815
  Receipt Date: 20130815
  Transmission Date: 20141002
  Serious: Yes (Hospitalization, Other)
  Sender: FDA-Public Use
  Company Number: ADR-2013-00578

PATIENT
  Sex: Male

DRUGS (1)
  1. BACLOFEN INTRATHECAL 2000MCG/ML [Suspect]

REACTIONS (2)
  - Muscle spasticity [None]
  - Therapeutic response decreased [None]
